FAERS Safety Report 7074125-9 (Version None)
Quarter: 2010Q4

REPORT INFORMATION
  Report Type: 
  Country: None (occurrence: None)
  Receive Date: 20101029
  Receipt Date: 20101020
  Transmission Date: 20110411
  Serious: Yes (Other)
  Sender: FDA-Public Use
  Company Number: BR-PFIZER INC-2010093019

PATIENT
  Age: 48 Year
  Sex: Male
  Weight: 162 kg

DRUGS (4)
  1. XALATAN [Suspect]
     Indication: GLAUCOMA
     Dosage: 3 UG, 1X/DAY
     Route: 047
     Dates: start: 20100401
  2. XALATAN [Suspect]
     Indication: INTRAOCULAR PRESSURE INCREASED
  3. TIMOLOL [Suspect]
  4. RIVOTRIL [Concomitant]
     Indication: ANXIETY
     Dosage: UNK

REACTIONS (9)
  - DRY EYE [None]
  - DYSPNOEA [None]
  - EYE IRRITATION [None]
  - HEART RATE DECREASED [None]
  - HYPOTENSION [None]
  - MUSCLE FATIGUE [None]
  - MYALGIA [None]
  - NERVOUSNESS [None]
  - OCULAR HYPERAEMIA [None]
